FAERS Safety Report 5056423-3 (Version None)
Quarter: 2006Q3

REPORT INFORMATION
  Report Type: 
  Country: None (occurrence: None)
  Receive Date: 20060720
  Receipt Date: 20060717
  Transmission Date: 20061208
  Serious: Yes (Death)
  Sender: FDA-Public Use
  Company Number: 2006UW14572

PATIENT
  Age: 82 Year
  Sex: Male

DRUGS (2)
  1. CRESTOR [Suspect]
     Indication: BLOOD CHOLESTEROL INCREASED
     Route: 048
     Dates: start: 20050401
  2. CRESTOR [Suspect]
     Route: 048

REACTIONS (4)
  - GAIT DISTURBANCE [None]
  - HEADACHE [None]
  - NECK PAIN [None]
  - SUDDEN DEATH [None]
